FAERS Safety Report 4445240-0 (Version None)
Quarter: 2004Q3

REPORT INFORMATION
  Report Type: 
  Country: None (occurrence: None)
  Receive Date: 20040730
  Receipt Date: 20040429
  Transmission Date: 20050211
  Serious: No
  Sender: FDA-Public Use
  Company Number: PHEH2004US04823

PATIENT
  Age: 28 Year
  Sex: Female

DRUGS (1)
  1. GLEEVEC [Suspect]
     Dosage: ONCE/SINGLE, ORAL
     Route: 048
     Dates: start: 20040302, end: 20040302

REACTIONS (4)
  - ACCIDENTAL EXPOSURE [None]
  - DRUG EXPOSURE DURING PREGNANCY [None]
  - NO ADVERSE EFFECT [None]
  - NORMAL NEWBORN [None]
